FAERS Safety Report 25048284 (Version 2)
Quarter: 2025Q3

REPORT INFORMATION
  Report Type: Report from Study
  Country: US (occurrence: US)
  Receive Date: 20250307
  Receipt Date: 20250809
  Transmission Date: 20251020
  Serious: Yes (Other)
  Sender: ALEXION PHARMACEUTICALS
  Company Number: US-AstraZeneca-2024A174806

PATIENT
  Sex: Female

DRUGS (1)
  1. BENRALIZUMAB [Suspect]
     Active Substance: BENRALIZUMAB
     Indication: Asthma
     Dosage: 30 MILLIGRAM, Q8W
     Dates: start: 201807

REACTIONS (6)
  - Inflammation [Unknown]
  - Pain [Unknown]
  - Breast cancer female [Unknown]
  - Arthralgia [Unknown]
  - Blood pressure increased [Unknown]
  - Productive cough [Unknown]
